FAERS Safety Report 9553728 (Version 1)
Quarter: 2013Q3

REPORT INFORMATION
  Report Type: Spontaneous
  Country: US (occurrence: None)
  Receive Date: 20130814
  Receipt Date: 20130814
  Transmission Date: 20140515
  Serious: Yes (Other)
  Sender: FDA-Public Use
  Company Number: 1301USA013865

PATIENT
  Age: 74 Year
  Sex: Male

DRUGS (1)
  1. PROSCAR [Suspect]
     Indication: URINE FLOW DECREASED
     Route: 048
     Dates: start: 1995, end: 2003

REACTIONS (1)
  - Breast cancer male [None]
